FAERS Safety Report 22108959 (Version 1)
Quarter: 2023Q1

REPORT INFORMATION
  Report Type: Spontaneous
  Country: US (occurrence: None)
  Receive Date: 20230316
  Receipt Date: 20230316
  Transmission Date: 20230417
  Serious: Yes (Other)
  Sender: FDA-Public Use
  Company Number: None

PATIENT
  Age: 68 Year
  Sex: Female
  Weight: 53 kg

DRUGS (6)
  1. PROLIA [Suspect]
     Active Substance: DENOSUMAB
     Indication: Osteoporosis
     Dosage: OTHER FREQUENCY : EVERY 6 MONTHS;?
     Route: 030
     Dates: start: 20220523, end: 20220523
  2. LISINOPRIL [Concomitant]
     Active Substance: LISINOPRIL
  3. hydro/apap 5/325 bid prn [Concomitant]
  4. ZOFRAN [Concomitant]
     Active Substance: ONDANSETRON HYDROCHLORIDE
  5. sodium fluoride (prevident) [Concomitant]
  6. sodium chloride 1g tablets [Concomitant]

REACTIONS (1)
  - Jaw disorder [None]

NARRATIVE: CASE EVENT DATE: 20220525
